FAERS Safety Report 14851082 (Version 5)
Quarter: 2018Q2

REPORT INFORMATION
  Report Type: Spontaneous
  Country: FR (occurrence: FR)
  Receive Date: 20180507
  Receipt Date: 20180620
  Transmission Date: 20180711
  Serious: Yes (Death, Life-Threatening, Other)
  Sender: FDA-Public Use
  Company Number: FR-MERCK KGAA-2047254

PATIENT
  Age: 84 Year
  Sex: Male
  Weight: 89 kg

DRUGS (19)
  1. LANSOPRAZOLE SANDOZ [Suspect]
     Active Substance: LANSOPRAZOLE
     Route: 048
  2. ELIQUIS [Suspect]
     Active Substance: APIXABAN
     Route: 048
     Dates: end: 20180228
  3. ROCEPHINE [Concomitant]
     Active Substance: CEFTRIAXONE SODIUM
     Dates: start: 201802
  4. ROVAMYCINE [Concomitant]
     Active Substance: SPIRAMYCIN
     Dates: start: 201802
  5. ACETYLCYSTEINE. [Concomitant]
     Active Substance: ACETYLCYSTEINE
     Dates: start: 20180115, end: 20180120
  6. DOLIPRANE [Suspect]
     Active Substance: ACETAMINOPHEN
     Route: 048
     Dates: end: 20180224
  7. AMOXICILLIN. [Concomitant]
     Active Substance: AMOXICILLIN
     Dates: start: 20180115, end: 20180120
  8. NOVOTHYROX [Suspect]
     Active Substance: LEVOTHYROXINE SODIUM
     Indication: HYPOTHYROIDISM
     Route: 048
  9. ULTRA-LEVURE [Concomitant]
     Active Substance: SACCHAROMYCES CEREVISIAE
     Dates: start: 20180115, end: 20180120
  10. AMIODARONE SANDOZ [Suspect]
     Active Substance: AMIODARONE
     Route: 048
  11. TAVANIC [Concomitant]
     Active Substance: LEVOFLOXACIN
     Dates: end: 20180302
  12. FOLIC ACID. [Suspect]
     Active Substance: FOLIC ACID
     Route: 048
     Dates: end: 20180307
  13. TARDYFERON [Suspect]
     Active Substance: FERROUS SULFATE
     Route: 048
     Dates: end: 20180307
  14. PARACETAMOL [Concomitant]
     Active Substance: ACETAMINOPHEN
     Route: 042
  15. AMLODIPINE [Suspect]
     Active Substance: AMLODIPINE BESYLATE
     Route: 048
  16. PRAVASTATINE SANDOZ [Suspect]
     Active Substance: PRAVASTATIN SODIUM
     Route: 048
     Dates: end: 20180226
  17. MACROGOL (POLYETHYLENE GLYCOL 3350\POTASSIUM CHLORIDE\SODIUM BICARBONATE\SODIUM CHLORIDE) [Suspect]
     Route: 048
  18. ALFUZOSINE SANDOZ [Suspect]
     Active Substance: ALFUZOSIN HYDROCHLORIDE
     Route: 048
  19. TAZOCILLINE(PIP/TAZO) [Concomitant]
     Dates: end: 20180302

REACTIONS (9)
  - Syncope [None]
  - Hepatojugular reflux [None]
  - Loss of consciousness [None]
  - Hyperthermia [None]
  - Cholestasis [Fatal]
  - Oedema peripheral [None]
  - Cell death [Fatal]
  - Cough [None]
  - General physical health deterioration [None]

NARRATIVE: CASE EVENT DATE: 20180224
